FAERS Safety Report 10873112 (Version 4)
Quarter: 2015Q3

REPORT INFORMATION
  Report Type: Report from Study
  Country: DE (occurrence: DE)
  Receive Date: 20150227
  Receipt Date: 20150819
  Transmission Date: 20151125
  Serious: Yes (Hospitalization, Disabling)
  Sender: FDA-Public Use
  Company Number: DE-ROCHE-1427042

PATIENT
  Age: 66 Year
  Sex: Female
  Weight: 47 kg

DRUGS (7)
  1. VEMURAFENIB [Suspect]
     Active Substance: VEMURAFENIB
     Dosage: MOST RECENT DOSE PRIOR TO AE ON 06/MAY/2014 AT 1440 MG BID, MOST RECENT DOSE PRIOR TO SAE ON 16/FEB/
     Route: 048
  2. VIGAMOX [Concomitant]
     Active Substance: MOXIFLOXACIN HYDROCHLORIDE
     Route: 061
  3. IBUPROFEN. [Concomitant]
     Active Substance: IBUPROFEN
     Indication: ARTHRALGIA
     Route: 048
  4. DEXAMYTREX [Concomitant]
     Route: 061
  5. VEMURAFENIB [Suspect]
     Active Substance: VEMURAFENIB
     Indication: METASTATIC MALIGNANT MELANOMA
     Dosage: RECEIVED SINGLE DOSE
     Route: 048
     Dates: start: 20140415
  6. INFLANEFRAN FORTE [Concomitant]
     Active Substance: PREDNISOLONE ACETATE
     Route: 065
  7. VOLTAREN [Concomitant]
     Active Substance: DICLOFENAC SODIUM
     Route: 061

REACTIONS (6)
  - Blood alkaline phosphatase abnormal [Not Recovered/Not Resolved]
  - Intraocular pressure increased [Not Recovered/Not Resolved]
  - Endophthalmitis [Recovered/Resolved]
  - Transient ischaemic attack [Recovered/Resolved with Sequelae]
  - Papule [Recovered/Resolved]
  - Blood alkaline phosphatase increased [Not Recovered/Not Resolved]

NARRATIVE: CASE EVENT DATE: 20140422
